FAERS Safety Report 21455259 (Version 2)
Quarter: 2022Q4

REPORT INFORMATION
  Report Type: Spontaneous
  Country: NL (occurrence: NL)
  Receive Date: 20221014
  Receipt Date: 20221020
  Transmission Date: 20230113
  Serious: Yes (Other)
  Sender: FDA-Public Use
  Company Number: NL-002147023-NVSC2022NL217750

PATIENT
  Age: 55 Year
  Sex: Female
  Weight: 74 kg

DRUGS (6)
  1. LISINOPRIL [Suspect]
     Active Substance: LISINOPRIL
     Indication: Hypertension
     Dosage: 5 MILLIGRAM, ONCE A DAY, 5 MG, QD (1X 5MG)
     Route: 065
     Dates: start: 20220219
  2. LISINOPRIL [Suspect]
     Active Substance: LISINOPRIL
     Dosage: 10 MILLIGRAM, ONCE A DAY
     Route: 065
  3. ASCIMINIB [Suspect]
     Active Substance: ASCIMINIB
     Indication: Chronic myeloid leukaemia
     Dosage: 80 MILLIGRAM, ONCE A DAY (40 MG, BID (2X40 MG))
     Route: 065
     Dates: start: 20191213
  4. ASCIMINIB [Suspect]
     Active Substance: ASCIMINIB
     Dosage: 40 MILLIGRAM, ONCE A DAY (20 MG, BID
     Route: 065
     Dates: start: 20191213, end: 202003
  5. ASCIMINIB [Suspect]
     Active Substance: ASCIMINIB
     Dosage: UNK
     Route: 065
     Dates: start: 202004
  6. HYDROCHLOROTHIAZIDE [Concomitant]
     Active Substance: HYDROCHLOROTHIAZIDE
     Indication: Product used for unknown indication
     Dosage: UNK
     Route: 065

REACTIONS (6)
  - Transient ischaemic attack [Recovered/Resolved with Sequelae]
  - Meningioma [Unknown]
  - Muscular weakness [Recovered/Resolved with Sequelae]
  - Oedema peripheral [Recovered/Resolved with Sequelae]
  - Dermatitis allergic [Recovered/Resolved with Sequelae]
  - Hypertension [Recovered/Resolved with Sequelae]

NARRATIVE: CASE EVENT DATE: 20200301
